FAERS Safety Report 6804280-4 (Version None)
Quarter: 2010Q2

REPORT INFORMATION
  Report Type: 
  Country: None (occurrence: None)
  Receive Date: 20100628
  Receipt Date: 20070302
  Transmission Date: 20101027
  Serious: Yes (Other)
  Sender: FDA-Public Use
  Company Number: US-PFIZER INC-2007016895

PATIENT
  Sex: Female

DRUGS (3)
  1. GEODON [Suspect]
     Dates: start: 20061201
  2. LAMICTAL [Concomitant]
  3. KLONOPIN [Concomitant]

REACTIONS (5)
  - ABDOMINAL DISTENSION [None]
  - CONVULSION [None]
  - CRYING [None]
  - DRUG INEFFECTIVE [None]
  - GENERAL PHYSICAL HEALTH DETERIORATION [None]
